FAERS Safety Report 7208157-4 (Version None)
Quarter: 2011Q1

REPORT INFORMATION
  Report Type: 
  Country: None (occurrence: None)
  Receive Date: 20110104
  Receipt Date: 20101220
  Transmission Date: 20110831
  Serious: Yes (Other)
  Sender: FDA-Public Use
  Company Number: MX-BAYER-2010-005978

PATIENT
  Age: 27 Year
  Sex: Female

DRUGS (3)
  1. NIFEDIPINE [Concomitant]
     Indication: BLOOD PRESSURE INCREASED
  2. MIRENA [Suspect]
     Dosage: 52 MG, UNK
     Route: 015
     Dates: start: 20100419
  3. NIFEDIPINE [Concomitant]

REACTIONS (8)
  - DEVICE DISLOCATION [None]
  - PROCEDURAL PAIN [None]
  - OCULAR ICTERUS [None]
  - GENITAL HAEMORRHAGE [None]
  - HYPERTENSIVE CRISIS [None]
  - WEIGHT DECREASED [None]
  - OVARIAN CYST [None]
  - UTERINE LEIOMYOMA [None]
